FAERS Safety Report 19905933 (Version 1)
Quarter: 2021Q3

REPORT INFORMATION
  Report Type: Spontaneous
  Country: US (occurrence: US)
  Receive Date: 20210930
  Receipt Date: 20210930
  Transmission Date: 20211014
  Serious: No
  Sender: FDA-Public Use
  Company Number: None

PATIENT
  Age: 60 Year
  Sex: Female
  Weight: 103.42 kg

DRUGS (1)
  1. SIMPONI [Suspect]
     Active Substance: GOLIMUMAB
     Indication: RHEUMATOID ARTHRITIS
     Route: 058
     Dates: start: 202108

REACTIONS (6)
  - Systemic lupus erythematosus [None]
  - Pancreatitis [None]
  - Stress [None]
  - Therapy interrupted [None]
  - Viral infection [None]
  - Rheumatoid arthritis [None]
